FAERS Safety Report 21386411 (Version 1)
Quarter: 2022Q3

REPORT INFORMATION
  Report Type: Spontaneous
  Country: HU (occurrence: HU)
  Receive Date: 20220928
  Receipt Date: 20220928
  Transmission Date: 20221026
  Serious: Yes (Other)
  Sender: FDA-Public Use
  Company Number: HU-002147023-NVSC2022HU165382

PATIENT
  Age: 81 Year
  Sex: Female

DRUGS (1)
  1. EPIRUBICIN HYDROCHLORIDE [Suspect]
     Active Substance: EPIRUBICIN HYDROCHLORIDE
     Indication: Breast angiosarcoma metastatic
     Dosage: UNK
     Route: 065

REACTIONS (3)
  - Breast angiosarcoma metastatic [Unknown]
  - Condition aggravated [Unknown]
  - Off label use [Unknown]
